FAERS Safety Report 8305065-2 (Version None)
Quarter: 2012Q2

REPORT INFORMATION
  Report Type: 
  Country: None (occurrence: None)
  Receive Date: 20120423
  Receipt Date: 20120412
  Transmission Date: 20120825
  Serious: Yes (Other)
  Sender: FDA-Public Use
  Company Number: BR-ASTRAZENECA-2012SE24430

PATIENT
  Age: 51 Year
  Sex: Male
  Weight: 87 kg

DRUGS (8)
  1. LIPLESS [Concomitant]
     Route: 048
     Dates: start: 20090101
  2. ZETIA [Concomitant]
     Indication: BLOOD CHOLESTEROL INCREASED
     Route: 048
     Dates: start: 20090101, end: 20120401
  3. CRESTOR [Suspect]
     Route: 048
  4. ZETIA [Concomitant]
     Indication: BLOOD TRIGLYCERIDES INCREASED
     Route: 048
     Dates: start: 20090101, end: 20120401
  5. CRESTOR [Suspect]
     Indication: BLOOD CHOLESTEROL INCREASED
     Route: 048
     Dates: start: 20090101, end: 20120401
  6. CRESTOR [Suspect]
     Indication: BLOOD TRIGLYCERIDES INCREASED
     Route: 048
     Dates: start: 20090101, end: 20120401
  7. SOMALGIN [Concomitant]
     Route: 048
     Dates: start: 20090101
  8. CRESTOR [Suspect]
     Route: 048

REACTIONS (1)
  - ARTERIAL OCCLUSIVE DISEASE [None]
